FAERS Safety Report 6199841-2 (Version None)
Quarter: 2009Q2

REPORT INFORMATION
  Report Type: 
  Country: None (occurrence: None)
  Receive Date: 20090520
  Receipt Date: 20090520
  Transmission Date: 20091009
  Serious: Yes (Hospitalization)
  Sender: FDA-Public Use
  Company Number: None

PATIENT
  Age: 72 Year
  Sex: Male

DRUGS (1)
  1. WARFARIN [Suspect]
     Indication: ATRIAL FLUTTER
     Dosage: 2.5 MG EVERY DAY PO
     Route: 048
     Dates: start: 19941220, end: 20090512

REACTIONS (6)
  - ECCHYMOSIS [None]
  - FALL [None]
  - HAEMATOMA [None]
  - HAEMORRHAGE [None]
  - INTERNATIONAL NORMALISED RATIO INCREASED [None]
  - OEDEMA PERIPHERAL [None]
